FAERS Safety Report 8611368-4 (Version None)
Quarter: 2012Q3

REPORT INFORMATION
  Report Type: 
  Country: None (occurrence: None)
  Receive Date: 20120822
  Receipt Date: 20120815
  Transmission Date: 20120928
  Serious: Yes (Other)
  Sender: FDA-Public Use
  Company Number: US-CELGENEUS-163-21880-12022609

PATIENT
  Sex: Male
  Weight: 70.824 kg

DRUGS (2)
  1. REVLIMID [Suspect]
     Indication: MULTIPLE MYELOMA
     Dosage: 15 MILLIGRAM
     Route: 048
     Dates: start: 20110627
  2. REVLIMID [Suspect]
     Dosage: 10 MILLIGRAM
     Route: 048
     Dates: start: 20120501

REACTIONS (8)
  - BONE MARROW FAILURE [None]
  - PARAESTHESIA [None]
  - LENTIGO [None]
  - MUSCULOSKELETAL PAIN [None]
  - CONSTIPATION [None]
  - THORACIC VERTEBRAL FRACTURE [None]
  - OEDEMA PERIPHERAL [None]
  - SPINAL COLUMN STENOSIS [None]
